FAERS Safety Report 4954842-4 (Version None)
Quarter: 2006Q1

REPORT INFORMATION
  Report Type: 
  Country: None (occurrence: None)
  Receive Date: 20060322
  Receipt Date: 20060303
  Transmission Date: 20060701
  Serious: Yes (Death)
  Sender: FDA-Public Use
  Company Number: CA200603001551

PATIENT
  Age: 51 Year
  Sex: Male

DRUGS (1)
  1. STRATTERA [Suspect]
     Dosage: 1.8 MG/KG
     Dates: start: 20050701

REACTIONS (1)
  - DEATH [None]
